FAERS Safety Report 10732252 (Version 1)
Quarter: 2015Q1

REPORT INFORMATION
  Report Type: Report from Study
  Country: FR (occurrence: FR)
  Receive Date: 20150123
  Receipt Date: 20150123
  Transmission Date: 20150721
  Serious: Yes (Other)
  Sender: FDA-Public Use
  Company Number: FR-ROCHE-1523995

PATIENT

DRUGS (3)
  1. DINACICLIB [Suspect]
     Active Substance: DINACICLIB
     Dosage: BEGINNING WITH DAY 8 AND CONTINUING THEREAFTER
     Route: 042
  2. DINACICLIB [Suspect]
     Active Substance: DINACICLIB
     Indication: CHRONIC LYMPHOCYTIC LEUKAEMIA
     Dosage: AS A 2 H INFUSION ON DAY 1,
     Route: 042
  3. RITUXIMAB [Suspect]
     Active Substance: RITUXIMAB
     Indication: CHRONIC LYMPHOCYTIC LEUKAEMIA
     Dosage: ON DAY 1, 8, 15 AND 22 IN CYCLE 1 AND ON DAY 1 DURING CYCLE 3 THROUGH 13.
     Route: 042

REACTIONS (1)
  - Acute kidney injury [Recovered/Resolved]
